FAERS Safety Report 16483947 (Version 1)
Quarter: 2019Q3

REPORT INFORMATION
  Report Type: Spontaneous
  Country: US (occurrence: US)
  Receive Date: 20190625
  Receipt Date: 20190625
  Transmission Date: 20191004
  Serious: Yes (Disabling)
  Sender: FDA-Public Use
  Company Number: None

PATIENT
  Age: 52 Year
  Sex: Male
  Weight: 123.75 kg

DRUGS (1)
  1. SOMADERM GEL [Suspect]
     Active Substance: HOMEOPATHICS
     Indication: GROWTH HORMONE DEFICIENCY
     Dosage: ?          QUANTITY:2 PUMPS;?
     Route: 061

REACTIONS (5)
  - Blood pressure increased [None]
  - Anal haemorrhage [None]
  - Arthralgia [None]
  - Application site rash [None]
  - Weight increased [None]

NARRATIVE: CASE EVENT DATE: 20181201
